FAERS Safety Report 6221187-4 (Version None)
Quarter: 2009Q2

REPORT INFORMATION
  Report Type: 
  Country: None (occurrence: None)
  Receive Date: 20090610
  Receipt Date: 20090605
  Transmission Date: 20091009
  Serious: Yes (Other)
  Sender: FDA-Public Use
  Company Number: CA-ROXANE LABORATORIES, INC.-2009-RO-00557RO

PATIENT
  Age: 60 Year
  Sex: Male

DRUGS (6)
  1. AMLODIPINE [Suspect]
  2. FUROSEMIDE [Suspect]
  3. ASPIRIN [Suspect]
  4. PERINDOPRIL ERBUMINE [Suspect]
     Dosage: 2MG
  5. SIMVASTATIN [Suspect]
  6. SODIUM CHLORIDE [Concomitant]

REACTIONS (1)
  - ANAPHYLACTOID REACTION [None]
